FAERS Safety Report 11282391 (Version 1)
Quarter: 2015Q3

REPORT INFORMATION
  Report Type: Spontaneous
  Country: US (occurrence: US)
  Receive Date: 20150720
  Receipt Date: 20150720
  Transmission Date: 20151125
  Serious: No
  Sender: FDA-Public Use
  Company Number: US-TEVA-501809USA

PATIENT
  Sex: Female

DRUGS (1)
  1. LISINOPRIL. [Suspect]
     Active Substance: LISINOPRIL

REACTIONS (4)
  - Wheezing [Unknown]
  - Product physical issue [Unknown]
  - Throat irritation [Unknown]
  - Nasal disorder [Unknown]

NARRATIVE: CASE EVENT DATE: 20140811
